FAERS Safety Report 25813644 (Version 1)
Quarter: 2025Q3

REPORT INFORMATION
  Report Type: Spontaneous
  Country: US (occurrence: US)
  Receive Date: 20250917
  Receipt Date: 20250917
  Transmission Date: 20251021
  Serious: No
  Sender: HETERO
  Company Number: US-HETERO-HET2025US05471

PATIENT

DRUGS (1)
  1. SAPROPTERIN [Suspect]
     Active Substance: SAPROPTERIN
     Indication: Amino acid level abnormal
     Route: 048

REACTIONS (3)
  - Amino acid level increased [Unknown]
  - Product colour issue [Unknown]
  - Product physical issue [Unknown]
